FAERS Safety Report 11067090 (Version 3)
Quarter: 2016Q2

REPORT INFORMATION
  Report Type: Spontaneous
  Country: US (occurrence: US)
  Receive Date: 20150425
  Receipt Date: 20160530
  Transmission Date: 20160815
  Serious: Yes (Other)
  Sender: FDA-Public Use
  Company Number: US-JNJFOC-20130907306

PATIENT
  Age: 14 Year
  Sex: Male

DRUGS (1)
  1. REMICADE [Suspect]
     Active Substance: INFLIXIMAB
     Indication: COLITIS ULCERATIVE
     Dosage: THE PATIENT HAD A TOTAL OF 3 INFUSIONS
     Route: 042
     Dates: start: 2013

REACTIONS (4)
  - Frequent bowel movements [Recovered/Resolved]
  - Pain [Unknown]
  - Haemorrhage [Recovered/Resolved]
  - Clostridium difficile infection [Unknown]

NARRATIVE: CASE EVENT DATE: 2013
